FAERS Safety Report 7040835-2 (Version None)
Quarter: 2010Q3

REPORT INFORMATION
  Report Type: 
  Country: None (occurrence: None)
  Receive Date: 20100929
  Receipt Date: 20100622
  Transmission Date: 20110219
  Serious: No
  Sender: FDA-Public Use
  Company Number: US-WYE-H15127910

PATIENT
  Age: 59 Year
  Sex: Female
  Weight: 77.18 kg

DRUGS (14)
  1. PRISTIQ [Suspect]
     Indication: ANXIETY
     Dosage: 50 MG 1X PER 1 DAY, ORAL
     Route: 048
     Dates: start: 20100415
  2. PRISTIQ [Suspect]
     Indication: DEPRESSION
     Dosage: 50 MG 1X PER 1 DAY, ORAL
     Route: 048
     Dates: start: 20100415
  3. ASACOL [Concomitant]
  4. FISH OIL, HYDROGENATED (FISH OIL, HYDROGENATED) [Concomitant]
  5. CENTRUM SILVER (MULTIVITAMIN/MULTIMINERAL) [Concomitant]
  6. ACIDOPHILUS ^ZYMA^ (LACTOBACILLUS ACIDOPHILUS) [Concomitant]
  7. VITAMIN B COMPLEX TAB [Concomitant]
  8. VITAMIN D3 (COLECALIFEROL) [Concomitant]
  9. ALFALFA (MEDICAGO SATIVA) [Concomitant]
  10. GARLIC (GARLIC) [Concomitant]
  11. ASCORBIC ACID [Concomitant]
  12. FOLIC ACID [Concomitant]
  13. GLUCOSAMINE (GLUCOSAMINE) [Concomitant]
  14. METHYLSULFONYLMETHANE (METHYLSULFONYLMETHANE) [Concomitant]

REACTIONS (4)
  - DRUG INEFFECTIVE [None]
  - EXPIRED DRUG ADMINISTERED [None]
  - FATIGUE [None]
  - MEDICATION RESIDUE [None]
